FAERS Safety Report 8134512-4 (Version None)
Quarter: 2012Q1

REPORT INFORMATION
  Report Type: 
  Country: None (occurrence: None)
  Receive Date: 20120214
  Receipt Date: 20120202
  Transmission Date: 20120608
  Serious: Yes (Hospitalization)
  Sender: FDA-Public Use
  Company Number: DE-UCBSA-033663

PATIENT
  Age: 71 Year
  Sex: Female

DRUGS (24)
  1. MADOPAR [Concomitant]
     Indication: PARKINSON'S DISEASE
     Dates: start: 20110512, end: 20111208
  2. MADOPAR LT [Concomitant]
     Indication: PARKINSON'S DISEASE
     Dates: start: 20110512
  3. MADOPAR [Concomitant]
     Dates: start: 20111209
  4. AMANTADINE HCL [Concomitant]
     Dates: start: 20101021
  5. NEUPRO [Suspect]
     Indication: PARKINSON'S DISEASE
     Route: 062
     Dates: start: 20101028, end: 20110512
  6. SIMVASTATIN [Concomitant]
     Indication: BLOOD CHOLESTEROL INCREASED
  7. AMANTADINE HCL [Concomitant]
     Indication: PARKINSON'S DISEASE
     Dates: end: 20091001
  8. AMANTADINE HCL [Concomitant]
     Dosage: DOSE DECREASED
  9. METOCLOPRAMIDE [Concomitant]
     Indication: HYPERTENSION
     Dates: end: 20110917
  10. SIMVASTATIN [Concomitant]
     Dates: start: 20110512
  11. AZILECT [Concomitant]
     Indication: PARKINSON'S DISEASE
     Dates: start: 20110512
  12. SIMVASTATIN [Concomitant]
     Indication: BLOOD CHOLESTEROL DECREASED
  13. ENALAPRIL PLUS [Concomitant]
     Dosage: 10/25MG
     Dates: start: 20110512
  14. TORSEMIDE [Concomitant]
     Indication: HYPERTENSION
     Dates: start: 20110512, end: 20110917
  15. NEUPRO [Suspect]
     Route: 062
     Dates: start: 20091001, end: 20091001
  16. SIMVASTATIN [Concomitant]
     Dates: start: 20110512
  17. SEROQUEL [Concomitant]
     Indication: HALLUCINATION
     Dates: start: 20110512, end: 20110917
  18. NEUPRO [Suspect]
     Route: 062
     Dates: start: 20101022, end: 20101027
  19. NEUPRO [Suspect]
     Route: 062
     Dates: start: 20101001, end: 20101001
  20. NEUPRO [Suspect]
     Route: 062
     Dates: start: 20091001, end: 20100401
  21. LEVOTHYROXINE SODIUM [Concomitant]
     Indication: SURGERY
     Dosage: 75 OTHER UG
     Dates: start: 20100801
  22. NEUPRO [Suspect]
     Route: 062
     Dates: start: 20090701, end: 20091001
  23. ENALAPRIL [Concomitant]
     Indication: HYPERTENSION
  24. ENALAPRIL PLUS [Concomitant]
     Indication: HYPERTENSION
     Dosage: DAILY DOSE:10/25 MG
     Dates: start: 20100415, end: 20110401

REACTIONS (1)
  - GAIT DISTURBANCE [None]
